FAERS Safety Report 6860955-2 (Version None)
Quarter: 2010Q3

REPORT INFORMATION
  Report Type: 
  Country: None (occurrence: None)
  Receive Date: 20100715
  Receipt Date: 20100630
  Transmission Date: 20110219
  Serious: Yes (Hospitalization)
  Sender: FDA-Public Use
  Company Number: 2010070012

PATIENT
  Age: 26 Year
  Sex: Female

DRUGS (12)
  1. TORSEMIDE [Suspect]
     Indication: CONGESTIVE CARDIOMYOPATHY
     Dosage: 10 MG (10 MG, 1 IN 1 D), ORAL
     Route: 048
     Dates: start: 20090901
  2. ABILIFY [Suspect]
     Indication: SCHIZOPHRENIA
     Dosage: 10 MG (10 MG, 1 IN 1 D), ORAL; 15 MG (15 MG, 1 IN 1 D), ORAL
     Route: 048
     Dates: start: 20081201, end: 20090901
  3. ABILIFY [Suspect]
     Indication: SCHIZOPHRENIA
     Dosage: 10 MG (10 MG, 1 IN 1 D), ORAL; 15 MG (15 MG, 1 IN 1 D), ORAL
     Route: 048
     Dates: start: 20090901
  4. XIPAMID (XIPAMIDE) [Suspect]
     Indication: CARDIAC FAILURE
     Dosage: 10 MG (10 MG, 1 IN 1 D), ORAL
     Route: 048
     Dates: start: 20090901, end: 20100330
  5. PANTOPRAZOL (PANTOPRAZOLE) [Concomitant]
  6. BISOPROLOL FUMARATE [Concomitant]
  7. RAMIPRIL [Concomitant]
  8. DIGITOXIN INJ [Concomitant]
  9. SPIRONOLACTONE [Concomitant]
  10. PIPAMPERONE (PIPAMPERONE) [Concomitant]
  11. CLOZAPINE [Concomitant]
  12. TREVILOR RETARD (VENLAFAXINE HCL) [Concomitant]

REACTIONS (3)
  - CARDIAC FAILURE [None]
  - CONGESTIVE CARDIOMYOPATHY [None]
  - DIABETES MELLITUS [None]
